FAERS Safety Report 11941149 (Version 1)
Quarter: 2016Q1

REPORT INFORMATION
  Report Type: Spontaneous
  Country: IT (occurrence: IT)
  Receive Date: 20160122
  Receipt Date: 20160122
  Transmission Date: 20160526
  Serious: Yes (Hospitalization)
  Sender: FDA-Public Use
  Company Number: IT-ANGELINI-1046807

PATIENT
  Age: 59 Year
  Sex: Male

DRUGS (6)
  1. REMERON [Suspect]
     Active Substance: MIRTAZAPINE
     Route: 048
     Dates: start: 20151224, end: 20151231
  2. XEFERIL (PLANT ALKALOIDS AND OTHER NATURAL PRODUCTS) [Concomitant]
     Route: 048
  3. LENDORMIN (BROTIZOLAM) [Concomitant]
     Route: 048
  4. XANAX [Concomitant]
     Active Substance: ALPRAZOLAM
     Route: 048
  5. TRAZODONE [Suspect]
     Active Substance: TRAZODONE HYDROCHLORIDE
     Indication: DEPRESSION
     Route: 048
     Dates: start: 20151224, end: 20151231
  6. VENLAFAXINE HYDROCHLORIDE. [Suspect]
     Active Substance: VENLAFAXINE HYDROCHLORIDE
     Route: 048
     Dates: start: 20151224, end: 20151231

REACTIONS (10)
  - Unresponsive to stimuli [Unknown]
  - Mucosal dryness [Unknown]
  - Dysuria [Unknown]
  - Hypertonia [Unknown]
  - Tachycardia [Unknown]
  - Aphasia [Unknown]
  - Confusional state [Unknown]
  - Serotonin syndrome [Unknown]
  - Tremor [Unknown]
  - Off label use [Unknown]

NARRATIVE: CASE EVENT DATE: 20151231
